APPROVED DRUG PRODUCT: PHOXILLUM BK 4/2.5 IN PLASTIC CONTAINER
Active Ingredient: CALCIUM CHLORIDE; MAGNESIUM CHLORIDE; POTASSIUM CHLORIDE; SODIUM BICARBONATE; SODIUM CHLORIDE; SODIUM PHOSPHATE
Strength: 3.68GM/1000ML;3.05GM/1000ML;0.314GM/1000ML ;3.09GM/1000ML;6.34GM/1000ML;0.187GM/1000ML (5000ML)
Dosage Form/Route: INJECTABLE;INJECTION
Application: N207026 | Product #001
Applicant: VANTIVE US HEALTHCARE LLC
Approved: Jan 13, 2015 | RLD: Yes | RS: Yes | Type: RX